FAERS Safety Report 19393464 (Version 2)
Quarter: 2021Q2

REPORT INFORMATION
  Report Type: Report from Study
  Country: US (occurrence: US)
  Receive Date: 20210609
  Receipt Date: 20210613
  Transmission Date: 20210717
  Serious: No
  Sender: FDA-Public Use
  Company Number: NVSC2021US124065

PATIENT
  Sex: Female

DRUGS (1)
  1. COSENTYX [Suspect]
     Active Substance: SECUKINUMAB
     Indication: ANKYLOSING SPONDYLITIS
     Dosage: 300 MG, QW, BENEATH THE SKIN, USUALLY VIA INJECTION
     Route: 058

REACTIONS (6)
  - Arthralgia [Recovering/Resolving]
  - Neck pain [Recovering/Resolving]
  - Injection site bruising [Recovering/Resolving]
  - Off label use [Unknown]
  - Spinal pain [Recovering/Resolving]
  - Pain in extremity [Recovering/Resolving]
